FAERS Safety Report 16260019 (Version 1)
Quarter: 2019Q2

REPORT INFORMATION
  Report Type: Spontaneous
  Country: US (occurrence: US)
  Receive Date: 20190430
  Receipt Date: 20190430
  Transmission Date: 20190711
  Serious: Yes (Hospitalization)
  Sender: FDA-Public Use
  Company Number: None

PATIENT
  Age: 51 Year
  Sex: Female
  Weight: 57.6 kg

DRUGS (6)
  1. AIMOVIG [Suspect]
     Active Substance: ERENUMAB-AOOE
     Indication: MIGRAINE
     Dosage: ?          OTHER FREQUENCY:ONCE A MONTH;?
     Route: 030
     Dates: start: 20181119, end: 20190319
  2. CARBAMAZEPINE. [Concomitant]
     Active Substance: CARBAMAZEPINE
  3. BUPROPION. [Concomitant]
     Active Substance: BUPROPION
  4. ESKALITH [Concomitant]
     Active Substance: LITHIUM CARBONATE
  5. TREXIMET [Concomitant]
     Active Substance: NAPROXEN SODIUM\SUMATRIPTAN SUCCINATE
  6. METROPOL [Concomitant]

REACTIONS (2)
  - Nausea [None]
  - Constipation [None]

NARRATIVE: CASE EVENT DATE: 20190212
